FAERS Safety Report 13662325 (Version 1)
Quarter: 2017Q2

REPORT INFORMATION
  Report Type: Report from Study
  Country: US (occurrence: US)
  Receive Date: 20170617
  Receipt Date: 20170617
  Transmission Date: 20170830
  Serious: Yes (Death)
  Sender: FDA-Public Use
  Company Number: US-TORRENT-00003070

PATIENT
  Age: 16 Year
  Sex: Female

DRUGS (4)
  1. BUPROPION HYDROCHLORIDE. [Suspect]
     Active Substance: BUPROPION HYDROCHLORIDE
  2. VALPROIC ACID. [Suspect]
     Active Substance: VALPROIC ACID
  3. CAFFEINE. [Suspect]
     Active Substance: CAFFEINE
  4. AMFETAMINE SULFATE [Suspect]
     Active Substance: AMPHETAMINE SULFATE

REACTIONS (3)
  - Cardio-respiratory arrest [Fatal]
  - Completed suicide [Fatal]
  - Toxicity to various agents [Fatal]
